FAERS Safety Report 4314630-9 (Version None)
Quarter: 2004Q1

REPORT INFORMATION
  Report Type: 
  Country: None (occurrence: None)
  Receive Date: 20040308
  Receipt Date: 20031009
  Transmission Date: 20041129
  Serious: Yes (Other)
  Sender: FDA-Public Use
  Company Number: PROG00203002968

PATIENT
  Sex: Female

DRUGS (4)
  1. PROGESTERONE [Suspect]
     Indication: HORMONE REPLACEMENT THERAPY
     Dosage: 200 MG QD PO
     Route: 048
     Dates: start: 20030908, end: 20030915
  2. ESTROGEL [Suspect]
     Indication: HORMONE REPLACEMENT THERAPY
     Dosage: 2 DF DAILY TD, 3 DF DAILY TD
     Dates: start: 20030101, end: 20030915
  3. ESTROGEL [Suspect]
     Indication: HORMONE REPLACEMENT THERAPY
     Dosage: 2 DF DAILY TD, 3 DF DAILY TD
     Dates: start: 20030915
  4. ESTRADIOL [Concomitant]

REACTIONS (4)
  - DEPRESSION [None]
  - DRUG INEFFECTIVE [None]
  - INSOMNIA [None]
  - SUICIDAL IDEATION [None]
